FAERS Safety Report 7079664-2 (Version None)
Quarter: 2010Q4

REPORT INFORMATION
  Report Type: 
  Country: None (occurrence: None)
  Receive Date: 20101102
  Receipt Date: 20101021
  Transmission Date: 20110411
  Serious: Yes (Other)
  Sender: FDA-Public Use
  Company Number: PHHY2010DE71034

PATIENT
  Age: 70 Year
  Sex: Male

DRUGS (1)
  1. LEPONEX [Suspect]
     Indication: PSYCHOTIC DISORDER
     Dosage: 175 MG/DAY
     Dates: start: 20100901, end: 20101019

REACTIONS (4)
  - COGNITIVE DISORDER [None]
  - DYSTONIA [None]
  - EOSINOPHIL COUNT INCREASED [None]
  - PERIPHERAL VASCULAR DISORDER [None]
